FAERS Safety Report 11343353 (Version 2)
Quarter: 2015Q3

REPORT INFORMATION
  Report Type: Spontaneous
  Country: AT (occurrence: AT)
  Receive Date: 20150806
  Receipt Date: 20150811
  Transmission Date: 20151125
  Serious: Yes (Other)
  Sender: FDA-Public Use
  Company Number: AT-009507513-1507AUT012223

PATIENT
  Sex: Male

DRUGS (1)
  1. PROSCAR [Suspect]
     Active Substance: FINASTERIDE
     Indication: BENIGN PROSTATIC HYPERPLASIA
     Dosage: STRENGTH: 5 MG
     Route: 048

REACTIONS (4)
  - Urinary retention [Unknown]
  - Urethral stenosis [Unknown]
  - Pharyngeal oedema [Unknown]
  - Local swelling [Unknown]

NARRATIVE: CASE EVENT DATE: 2015
